FAERS Safety Report 14302575 (Version 1)
Quarter: 2017Q4

REPORT INFORMATION
  Report Type: Spontaneous
  Country: US (occurrence: US)
  Receive Date: 20171219
  Receipt Date: 20171219
  Transmission Date: 20180321
  Serious: No
  Sender: FDA-Public Use
  Company Number: None

PATIENT
  Age: 39 Year
  Sex: Female
  Weight: 62.7 kg

DRUGS (2)
  1. FECAL TRANSPLANT [Suspect]
     Active Substance: FECAL MICROBIOTA
     Indication: POUCHITIS
     Dosage: ?          OTHER FREQUENCY:ONCE;?
     Route: 054
     Dates: start: 20171018, end: 20171018
  2. FECAL TRANSPLANT [Suspect]
     Active Substance: FECAL MICROBIOTA
     Indication: COLITIS ULCERATIVE
     Dosage: ?          OTHER FREQUENCY:ONCE;?
     Route: 054
     Dates: start: 20171018, end: 20171018

REACTIONS (4)
  - Rectal haemorrhage [None]
  - Nausea [None]
  - Abdominal distension [None]
  - Abdominal discomfort [None]

NARRATIVE: CASE EVENT DATE: 20171028
